FAERS Safety Report 12348702 (Version 1)
Quarter: 2016Q2

REPORT INFORMATION
  Report Type: Spontaneous
  Country: FR (occurrence: FR)
  Receive Date: 20160509
  Receipt Date: 20160509
  Transmission Date: 20160815
  Serious: Yes (Life-Threatening, Other)
  Sender: FDA-Public Use
  Company Number: FR-GLAXOSMITHKLINE-FR2016GSK062713

PATIENT
  Age: 50 Year
  Sex: Male

DRUGS (19)
  1. ZELITREX [Suspect]
     Active Substance: VALACYCLOVIR HYDROCHLORIDE
     Indication: PRODUCT USED FOR UNKNOWN INDICATION
     Dosage: 500 MG, BID
     Route: 048
     Dates: end: 20160219
  2. STILNOX [Concomitant]
     Active Substance: ZOLPIDEM TARTRATE
     Dosage: UNK
  3. AUGMENTIN [Concomitant]
     Active Substance: AMOXICILLIN\CLAVULANATE POTASSIUM
     Indication: PYREXIA
     Dosage: UNK
     Dates: start: 20160225
  4. INEXIUM [Interacting]
     Active Substance: ESOMEPRAZOLE
     Indication: PRODUCT USED FOR UNKNOWN INDICATION
     Dosage: 20 MG, 1D
     Route: 048
     Dates: start: 20160217, end: 20160226
  5. METHYLPREDNISOLONE. [Concomitant]
     Active Substance: METHYLPREDNISOLONE
     Indication: DIFFUSE LARGE B-CELL LYMPHOMA STAGE IV
     Dosage: 73 MG, BID
     Route: 042
     Dates: start: 20160218, end: 20160221
  6. LEVOFOLINATE [Concomitant]
     Active Substance: LEVOLEUCOVORIN CALCIUM
     Indication: DIFFUSE LARGE B-CELL LYMPHOMA STAGE IV
     Dosage: 25 MG, 1D
     Route: 042
     Dates: start: 20160219, end: 20160221
  7. TAVANIC [Concomitant]
     Active Substance: LEVOFLOXACIN
     Indication: PYREXIA
     Dosage: UNK
     Dates: start: 20160225
  8. UROMITEXAN [Concomitant]
     Active Substance: MESNA
     Indication: PROPHYLAXIS
     Dosage: 312 MG, BID
     Route: 042
     Dates: start: 20160219, end: 20160219
  9. RITUXIMAB [Concomitant]
     Active Substance: RITUXIMAB
     Indication: DIFFUSE LARGE B-CELL LYMPHOMA STAGE IV
  10. BACTRIM [Concomitant]
     Active Substance: SULFAMETHOXAZOLE\TRIMETHOPRIM
     Dosage: UNK
     Dates: end: 20160218
  11. VINCRISTINE SULFATE. [Concomitant]
     Active Substance: VINCRISTINE SULFATE
     Indication: DIFFUSE LARGE B-CELL LYMPHOMA STAGE IV
     Dosage: 2 MG, UNK
     Route: 042
     Dates: start: 20160218, end: 20160218
  12. ENDOXAN [Concomitant]
     Active Substance: CYCLOPHOSPHAMIDE
     Indication: DIFFUSE LARGE B-CELL LYMPHOMA STAGE IV
     Dosage: 460 MG, BID
     Route: 042
     Dates: start: 20160219, end: 20160219
  13. METHOTREXATE [Interacting]
     Active Substance: METHOTREXATE
     Indication: DIFFUSE LARGE B-CELL LYMPHOMA STAGE IV
     Dosage: 5600 MG, 1D
     Route: 042
     Dates: start: 20160218, end: 20160218
  14. EMEND [Concomitant]
     Active Substance: APREPITANT
     Dosage: 125 MG, UNK
     Route: 048
     Dates: start: 20160218, end: 20160218
  15. XANAX [Concomitant]
     Active Substance: ALPRAZOLAM
     Dosage: UNK
  16. GLUCARPIDASE [Concomitant]
     Active Substance: GLUCARPIDASE
     Dosage: UNK
     Dates: start: 201602
  17. DOXORUBICINE [Concomitant]
     Active Substance: DOXORUBICIN
     Indication: DIFFUSE LARGE B-CELL LYMPHOMA STAGE IV
     Dosage: 112 MG, UNK
     Route: 042
     Dates: start: 20160219, end: 20160219
  18. ONDANSETRON [Concomitant]
     Active Substance: ONDANSETRON
     Dosage: 8 MG, VA
     Route: 042
     Dates: start: 20160218, end: 20160220
  19. ALLOPURINOL. [Concomitant]
     Active Substance: ALLOPURINOL
     Dosage: UNK
     Dates: start: 20160219

REACTIONS (10)
  - Bone marrow failure [Recovered/Resolved]
  - Confusional state [Recovered/Resolved]
  - Prothrombin level decreased [Recovered/Resolved]
  - Toxic skin eruption [Recovering/Resolving]
  - Mucosal inflammation [Recovering/Resolving]
  - Bilirubin conjugated increased [Not Recovered/Not Resolved]
  - Drug interaction [Unknown]
  - Renal impairment [Recovered/Resolved]
  - Blood albumin decreased [Not Recovered/Not Resolved]
  - Overdose [Recovered/Resolved]

NARRATIVE: CASE EVENT DATE: 201602
